FAERS Safety Report 14204276 (Version 2)
Quarter: 2017Q4

REPORT INFORMATION
  Report Type: Spontaneous
  Country: US (occurrence: US)
  Receive Date: 20171120
  Receipt Date: 20171121
  Transmission Date: 20180321
  Serious: No
  Sender: FDA-Public Use
  Company Number: US-BAYER-2017-221288

PATIENT
  Age: 75 Year
  Sex: Male
  Weight: 82 kg

DRUGS (2)
  1. CLARITIN [Suspect]
     Active Substance: LORATADINE
     Indication: NASOPHARYNGITIS
  2. CLARITIN [Suspect]
     Active Substance: LORATADINE
     Indication: ALLERGIC RESPIRATORY SYMPTOM
     Dosage: 1 DF, PRN
     Route: 048

REACTIONS (4)
  - Accidental exposure to product [Recovered/Resolved]
  - Vomiting [Recovered/Resolved]
  - Expired product administered [Unknown]
  - Drug ineffective [Unknown]

NARRATIVE: CASE EVENT DATE: 20171114
